FAERS Safety Report 22659533 (Version 1)
Quarter: 2023Q2

REPORT INFORMATION
  Report Type: Spontaneous
  Country: US (occurrence: US)
  Receive Date: 20230630
  Receipt Date: 20230630
  Transmission Date: 20230722
  Serious: Yes (Other)
  Sender: FDA-Public Use
  Company Number: US-INSUD PHARMA-2306US04195

PATIENT

DRUGS (3)
  1. TESTOSTERONE [Suspect]
     Active Substance: TESTOSTERONE
     Indication: Muscle building therapy
     Dosage: TAKEN PRIOR TO A BODYBUILDING COMPETITION
     Route: 065
  2. LIOTHYRONINE SODIUM [Concomitant]
     Active Substance: LIOTHYRONINE SODIUM
     Indication: Muscle building therapy
     Dosage: TAKEN PRIOR TO A BODYBUILDING COMPETITION
     Route: 065
  3. UNSPECIFIED INGREDIENT [Concomitant]
     Active Substance: UNSPECIFIED INGREDIENT
     Indication: Muscle building therapy
     Dosage: TAKEN PRIOR TO A BODYBUILDING COMPETITION
     Route: 065

REACTIONS (13)
  - Cardiac failure acute [Recovering/Resolving]
  - Toxic cardiomyopathy [Recovering/Resolving]
  - Chest pain [Recovering/Resolving]
  - Dyspnoea [Recovering/Resolving]
  - Abnormal weight gain [Recovering/Resolving]
  - Pyrexia [Recovering/Resolving]
  - Tachypnoea [Recovering/Resolving]
  - Tachycardia [Recovering/Resolving]
  - Hypoxia [Recovering/Resolving]
  - Jugular vein distension [Recovering/Resolving]
  - Rales [Recovering/Resolving]
  - Generalised oedema [Recovering/Resolving]
  - Drug abuse [Unknown]
